FAERS Safety Report 7118239-3 (Version None)
Quarter: 2010Q4

REPORT INFORMATION
  Report Type: 
  Country: None (occurrence: None)
  Receive Date: 20101123
  Receipt Date: 20100813
  Transmission Date: 20110411
  Serious: No
  Sender: FDA-Public Use
  Company Number: US-MYLANLABS-2010S1015009

PATIENT
  Sex: Male

DRUGS (2)
  1. MYCOPHENOLATE MOFETIL [Suspect]
     Route: 048
     Dates: start: 20100801, end: 20100801
  2. CELLCEPT [Suspect]
     Route: 048

REACTIONS (2)
  - DIPLOPIA [None]
  - VISION BLURRED [None]
